FAERS Safety Report 4885976-0 (Version None)
Quarter: 2006Q1

REPORT INFORMATION
  Report Type: 
  Country: None (occurrence: None)
  Receive Date: 20060120
  Receipt Date: 20060110
  Transmission Date: 20060701
  Serious: Yes (Hospitalization)
  Sender: FDA-Public Use
  Company Number: US-ABBOTT-06P-163-0321524-00

PATIENT
  Sex: Female
  Weight: 58.112 kg

DRUGS (5)
  1. HUMIRA [Suspect]
     Indication: RHEUMATOID ARTHRITIS
     Route: 058
     Dates: start: 20030101, end: 20050701
  2. ARTHROTEX [Concomitant]
     Indication: RHEUMATOID ARTHRITIS
     Dosage: NOT REPORTED
     Route: 048
  3. RESPIRTAL [Concomitant]
     Indication: SCHIZOPHRENIA
     Dosage: NOT REPORTED
     Route: 048
  4. SALBUTAMOL [Concomitant]
     Indication: DRUG USE FOR UNKNOWN INDICATION
     Dosage: NOT REPORTED
     Route: 055
     Dates: start: 20050701
  5. RISEDRONATE SODIUM [Concomitant]
     Indication: BONE DISORDER
     Dosage: NOT REPORTED
     Route: 048

REACTIONS (4)
  - DECUBITUS ULCER [None]
  - DYSPNOEA [None]
  - MALAISE [None]
  - SKIN ULCER [None]
